FAERS Safety Report 16608481 (Version 1)
Quarter: 2019Q3

REPORT INFORMATION
  Report Type: Spontaneous
  Country: CA (occurrence: CA)
  Receive Date: 20190722
  Receipt Date: 20190722
  Transmission Date: 20191004
  Serious: Yes (Hospitalization, Other)
  Sender: FDA-Public Use
  Company Number: CA-MYLANLABS-2019M1067295

PATIENT
  Age: 37 Year
  Sex: Female

DRUGS (4)
  1. FENTANYL. [Suspect]
     Active Substance: FENTANYL
     Indication: EPIDURAL ANALGESIA
     Dosage: 2 MICROG/ML; THE INFUSION WAS ADMINISTERED AT A RATE OF 10CC/HOUR
     Route: 008
  2. BUPIVACAINE. [Suspect]
     Active Substance: BUPIVACAINE
     Dosage: THE INFUSION WAS ADMINISTERED AT A RATE OF 10CC/HOUR
     Route: 008
  3. OXYTOCIN. [Suspect]
     Active Substance: OXYTOCIN
     Indication: LABOUR INDUCTION
     Route: 065
  4. BUPIVACAINE. [Suspect]
     Active Substance: BUPIVACAINE
     Indication: EPIDURAL ANALGESIA
     Dosage: STRENGTH: 0.125%
     Route: 008

REACTIONS (2)
  - Horner^s syndrome [Recovered/Resolved]
  - Maternal exposure during pregnancy [Recovered/Resolved]
